FAERS Safety Report 4288804-X (Version None)
Quarter: 2004Q1

REPORT INFORMATION
  Report Type: 
  Country: None (occurrence: None)
  Receive Date: 20040203
  Receipt Date: 20030930
  Transmission Date: 20041129
  Serious: Yes (Life-Threatening, Other)
  Sender: FDA-Public Use
  Company Number: 200324951BWH

PATIENT
  Age: 45 Year
  Sex: Female
  Weight: 104.7809 kg

DRUGS (2)
  1. AVELOX [Suspect]
     Indication: SINUSITIS
     Dosage: 400 MG, ONCE, ORAL
     Route: 048
     Dates: start: 20030929
  2. OXYMETAZOLINE HCL [Concomitant]

REACTIONS (6)
  - ANAPHYLACTIC REACTION [None]
  - NAUSEA [None]
  - RASH [None]
  - RASH GENERALISED [None]
  - STRIDOR [None]
  - VOMITING [None]
